FAERS Safety Report 24385780 (Version 1)
Quarter: 2024Q4

REPORT INFORMATION
  Report Type: Spontaneous
  Country: BR (occurrence: BR)
  Receive Date: 20241001
  Receipt Date: 20241001
  Transmission Date: 20250114
  Serious: Yes (Other)
  Sender: DAIICHI
  Company Number: BR-DSJP-DS-2024-100253-BR

PATIENT
  Age: 68 Year
  Sex: Female

DRUGS (2)
  1. ENHERTU [Suspect]
     Active Substance: FAM-TRASTUZUMAB DERUXTECAN-NXKI
     Indication: Breast cancer metastatic
     Dosage: 5.4 MG/KG, ONCE EVERY 3 WK
     Route: 065
  2. DENOSUMAB [Concomitant]
     Active Substance: DENOSUMAB
     Indication: Bone disorder
     Dosage: 120 MG, ONCE EVERY 4 WK
     Route: 065

REACTIONS (5)
  - Osteomyelitis chronic [Unknown]
  - Osteonecrosis of jaw [Unknown]
  - Pseudomonas infection [Unknown]
  - Nausea [Recovered/Resolved]
  - Alopecia [Unknown]
